FAERS Safety Report 5413520-8 (Version None)
Quarter: 2007Q3

REPORT INFORMATION
  Report Type: 
  Country: None (occurrence: None)
  Receive Date: 20070814
  Receipt Date: 20070809
  Transmission Date: 20080115
  Serious: Yes (Hospitalization)
  Sender: FDA-Public Use
  Company Number: FR-AVENTIS-200712305FR

PATIENT
  Age: 70 Year
  Sex: Female

DRUGS (8)
  1. LASILIX                            /00032601/ [Suspect]
     Route: 048
     Dates: start: 20070525
  2. ZYVOX [Suspect]
     Route: 042
     Dates: start: 20070602, end: 20070606
  3. PAROXETINE HCL [Suspect]
     Indication: DEPRESSION
     Route: 048
     Dates: start: 20050101, end: 20070606
  4. LOXEN [Suspect]
     Dates: start: 20070604
  5. ACETAMINOPHEN AND TRAMADOL HCL [Suspect]
     Route: 048
     Dates: start: 20070602
  6. QUINOLONE NOS [Concomitant]
     Indication: SEPSIS
     Dates: start: 20070501
  7. CEPHALOSPORINS AND RELATED SUBSTANCES [Concomitant]
     Indication: SEPSIS
     Dates: start: 20070501
  8. VANCOMYCIN [Concomitant]
     Indication: SEPSIS
     Dates: start: 20070501, end: 20070601

REACTIONS (1)
  - CONVULSION [None]
